FAERS Safety Report 10740170 (Version 1)
Quarter: 2015Q1

REPORT INFORMATION
  Report Type: Spontaneous
  Country: US (occurrence: US)
  Receive Date: 20150127
  Receipt Date: 20150127
  Transmission Date: 20150721
  Serious: Yes (Hospitalization)
  Sender: FDA-Public Use
  Company Number: US-009507513-1501USA007066

PATIENT
  Sex: Male

DRUGS (2)
  1. PROVENTIL [Suspect]
     Active Substance: ALBUTEROL
     Dosage: 2 PUFFS EVERY 4 HOURS AS REQUIRED
     Route: 055
  2. NASONEX [Suspect]
     Active Substance: MOMETASONE FUROATE
     Dosage: 2 SPRAYS IN EACH NOSTRIL DAILY
     Route: 055

REACTIONS (1)
  - Chronic obstructive pulmonary disease [Unknown]
